FAERS Safety Report 6574598-1 (Version None)
Quarter: 2010Q1

REPORT INFORMATION
  Report Type: 
  Country: None (occurrence: None)
  Receive Date: 20100209
  Receipt Date: 20100126
  Transmission Date: 20100710
  Serious: Yes (Other)
  Sender: FDA-Public Use
  Company Number: US-CELGENEUS-163-21880-10012022

PATIENT
  Sex: Female

DRUGS (2)
  1. REVLIMID [Suspect]
     Indication: LYMPHOPROLIFERATIVE DISORDER
     Route: 048
     Dates: start: 20070106
  2. WARFARIN SODIUM [Concomitant]
     Indication: DRUG USE FOR UNKNOWN INDICATION
     Route: 065

REACTIONS (1)
  - CARDIAC PACEMAKER INSERTION [None]
